FAERS Safety Report 6856892-X (Version None)
Quarter: 2010Q3

REPORT INFORMATION
  Report Type: 
  Country: None (occurrence: None)
  Receive Date: 20100719
  Receipt Date: 20100614
  Transmission Date: 20110219
  Serious: No
  Sender: FDA-Public Use
  Company Number: US-BRISTOL-MYERS SQUIBB COMPANY-15149693

PATIENT
  Age: 57 Year
  Sex: Female
  Weight: 69 kg

DRUGS (7)
  1. ESTRACE [Suspect]
     Dates: start: 19960101
  2. LATANOPROST [Concomitant]
     Indication: GLAUCOMA
  3. COSOPT [Concomitant]
     Indication: GLAUCOMA
  4. BENICAR HCT [Concomitant]
     Indication: CARDIAC FAILURE CONGESTIVE
  5. AMLODIPINE [Concomitant]
     Indication: BLOOD PRESSURE
  6. LANSOPRAZOLE [Concomitant]
     Indication: GASTROOESOPHAGEAL REFLUX DISEASE
  7. ACETYLSALICYLIC ACID [Concomitant]

REACTIONS (1)
  - ALOPECIA [None]
